FAERS Safety Report 14435319 (Version 1)
Quarter: 2018Q1

REPORT INFORMATION
  Report Type: Report from Study
  Country: US (occurrence: US)
  Receive Date: 20180125
  Receipt Date: 20180125
  Transmission Date: 20180509
  Serious: Yes (Death, Hospitalization, Other)
  Sender: FDA-Public Use
  Company Number: US-BRISTOL-MYERS SQUIBB COMPANY-BMS-2018-001955

PATIENT
  Age: 61 Year
  Sex: Female
  Weight: 75.3 kg

DRUGS (2)
  1. NIVOLUMAB [Suspect]
     Active Substance: NIVOLUMAB
     Indication: PANCREATIC CARCINOMA METASTATIC
     Dosage: 240 MG, Q3WK
     Route: 042
     Dates: start: 20171227, end: 20171227
  2. DARATUMUMAB [Suspect]
     Active Substance: DARATUMUMAB
     Indication: PANCREATIC CARCINOMA METASTATIC
     Dosage: 1105.6 MG, QWK
     Route: 042
     Dates: start: 20171214, end: 20180103

REACTIONS (4)
  - Peritonitis bacterial [Recovered/Resolved]
  - Atrial fibrillation [Not Recovered/Not Resolved]
  - Malignant neoplasm progression [Fatal]
  - Ischaemic stroke [Recovering/Resolving]

NARRATIVE: CASE EVENT DATE: 20180109
